FAERS Safety Report 4710682-2 (Version None)
Quarter: 2005Q3

REPORT INFORMATION
  Report Type: 
  Country: None (occurrence: None)
  Receive Date: 20050707
  Receipt Date: 20050616
  Transmission Date: 20060218
  Serious: Yes (Disabling, Other)
  Sender: FDA-Public Use
  Company Number: DE_050616197

PATIENT
  Age: 53 Year
  Sex: Female
  Weight: 69 kg

DRUGS (3)
  1. GEMZAR [Suspect]
     Indication: METASTASIS
     Dosage: 1000 MG/M2
  2. GEMZAR [Suspect]
     Indication: TRANSITIONAL CELL CARCINOMA
     Dosage: 1000 MG/M2
  3. CARBOPLATINE TEVA (CARBOPLATINE) [Concomitant]

REACTIONS (4)
  - HEMIANOPIA [None]
  - PAPILLOEDEMA [None]
  - THROMBOSIS [None]
  - VISUAL FIELD DEFECT [None]
